FAERS Safety Report 19070759 (Version 2)
Quarter: 2021Q2

REPORT INFORMATION
  Report Type: Spontaneous
  Country: GB (occurrence: GB)
  Receive Date: 20210330
  Receipt Date: 20210423
  Transmission Date: 20210717
  Serious: Yes (Hospitalization, Other)
  Sender: FDA-Public Use
  Company Number: GB-AXELLIA-003745

PATIENT
  Sex: Female

DRUGS (14)
  1. DAPTOMYCIN. [Suspect]
     Active Substance: DAPTOMYCIN
     Indication: ENDOCARDITIS BACTERIAL
  2. RIFAMPICIN [Interacting]
     Active Substance: RIFAMPIN
     Indication: ENDOCARDITIS BACTERIAL
     Dosage: UNK
  3. CUBICIN [Interacting]
     Active Substance: DAPTOMYCIN
     Indication: APLASTIC ANAEMIA
  4. RIFAMPICIN [Interacting]
     Active Substance: RIFAMPIN
     Indication: APLASTIC ANAEMIA
     Dosage: UNK
  5. CIPROFLOXACIN. [Interacting]
     Active Substance: CIPROFLOXACIN
     Indication: APLASTIC ANAEMIA
     Dosage: UNK
  6. NEORAL [Interacting]
     Active Substance: CYCLOSPORINE
     Indication: ENDOCARDITIS BACTERIAL
     Dosage: UNK
  7. CUBICIN [Interacting]
     Active Substance: DAPTOMYCIN
     Indication: ENDOCARDITIS BACTERIAL
  8. CICLOSPORIN [Interacting]
     Active Substance: CYCLOSPORINE
     Indication: APLASTIC ANAEMIA
  9. CICLOSPORIN [Interacting]
     Active Substance: CYCLOSPORINE
     Indication: ENDOCARDITIS BACTERIAL
  10. FLUCONAZOLE. [Interacting]
     Active Substance: FLUCONAZOLE
     Indication: ENDOCARDITIS BACTERIAL
     Dosage: UNK
  11. CIPROFLOXACIN. [Interacting]
     Active Substance: CIPROFLOXACIN
     Indication: ENDOCARDITIS BACTERIAL
     Dosage: UNK
  12. DAPTOMYCIN. [Interacting]
     Active Substance: DAPTOMYCIN
     Indication: APLASTIC ANAEMIA
  13. FLUCONAZOLE. [Interacting]
     Active Substance: FLUCONAZOLE
     Indication: APLASTIC ANAEMIA
     Dosage: UNK
  14. NEORAL [Interacting]
     Active Substance: CYCLOSPORINE
     Indication: ENDOCARDITIS BACTERIAL
     Dosage: UNK

REACTIONS (1)
  - Drug interaction [Unknown]
